FAERS Safety Report 14481037 (Version 2)
Quarter: 2018Q1

REPORT INFORMATION
  Report Type: Spontaneous
  Country: JP (occurrence: JP)
  Receive Date: 20180202
  Receipt Date: 20180221
  Transmission Date: 20180509
  Serious: Yes (Other)
  Sender: FDA-Public Use
  Company Number: JP-GLAXOSMITHKLINE-JP2018JPN014917

PATIENT
  Age: 5 Year
  Sex: Male
  Weight: 23 kg

DRUGS (8)
  1. NAUZELIN [Suspect]
     Active Substance: DOMPERIDONE
     Indication: NAUSEA
     Dosage: 0.67 G, TID
     Route: 048
     Dates: start: 20180123, end: 20180126
  2. NAUZELIN [Suspect]
     Active Substance: DOMPERIDONE
     Indication: VOMITING
  3. NAUZELIN [Suspect]
     Active Substance: DOMPERIDONE
     Indication: VOMITING
  4. CARBOCISTEINE DS [Concomitant]
     Dosage: UNK
     Dates: start: 20180122
  5. NAUZELIN [Suspect]
     Active Substance: DOMPERIDONE
     Indication: NAUSEA
     Dosage: 10 MG, PRN
     Route: 054
     Dates: start: 20180123, end: 20180126
  6. RELENZA [Suspect]
     Active Substance: ZANAMIVIR
     Indication: INFLUENZA
     Dosage: 10 MG, BID
     Route: 055
     Dates: start: 20180123, end: 20180125
  7. ASVERIN POWDER [Concomitant]
     Dosage: UNK
     Dates: start: 20180122
  8. CALONAL FINE GRANULES 20% [Concomitant]
     Dosage: UNK UNK, PRN
     Dates: start: 20180122

REACTIONS (1)
  - Hypothermia [Recovered/Resolved]

NARRATIVE: CASE EVENT DATE: 20180125
